FAERS Safety Report 17538843 (Version 1)
Quarter: 2020Q1

REPORT INFORMATION
  Report Type: Spontaneous
  Country: US (occurrence: US)
  Receive Date: 20200306
  Receipt Date: 20200306
  Transmission Date: 20200409
  Serious: Yes (Hospitalization)
  Sender: FDA-Public Use
  Company Number: None

PATIENT
  Age: 58 Year
  Sex: Female
  Weight: 94.9 kg

DRUGS (1)
  1. FEMARA [Suspect]
     Active Substance: LETROZOLE
     Dates: end: 20200218

REACTIONS (20)
  - Pyrexia [None]
  - Nausea [None]
  - Peritoneal neoplasm [None]
  - Abdominal adhesions [None]
  - Peritonitis [None]
  - Drug ineffective [None]
  - Ascites [None]
  - Flank pain [None]
  - Dysuria [None]
  - Pollakiuria [None]
  - Abdominal tenderness [None]
  - Abdominal distension [None]
  - Abdominal pain [None]
  - Micturition urgency [None]
  - Diarrhoea [None]
  - White blood cell count increased [None]
  - Neoplasm progression [None]
  - Metastatic neoplasm [None]
  - Constipation [None]
  - Gastrointestinal oedema [None]

NARRATIVE: CASE EVENT DATE: 20200219
